FAERS Safety Report 19701492 (Version 6)
Quarter: 2021Q4

REPORT INFORMATION
  Report Type: Spontaneous
  Country: BD (occurrence: BD)
  Receive Date: 20210813
  Receipt Date: 20211026
  Transmission Date: 20220304
  Serious: Yes (Death, Hospitalization, Other)
  Sender: FDA-Public Use
  Company Number: BD-ROCHE-2884365

PATIENT
  Age: 45 Year
  Sex: Male

DRUGS (1)
  1. ACTEMRA [Suspect]
     Active Substance: TOCILIZUMAB
     Indication: Product used for unknown indication
     Route: 042

REACTIONS (8)
  - Chills [Unknown]
  - Product counterfeit [Unknown]
  - Product counterfeit [Unknown]
  - Anaphylactic reaction [Unknown]
  - Blood pressure decreased [Unknown]
  - Oxygen saturation decreased [Unknown]
  - Cardiac arrest [Fatal]
  - Pulmonary embolism [Fatal]
